FAERS Safety Report 9180307 (Version 3)
Quarter: 2013Q3

REPORT INFORMATION
  Report Type: Spontaneous
  Country: US (occurrence: US)
  Receive Date: 20130322
  Receipt Date: 20130704
  Transmission Date: 20140515
  Serious: No
  Sender: FDA-Public Use
  Company Number: US-009507513-1303USA010872

PATIENT
  Age: 34 Year
  Sex: Female

DRUGS (1)
  1. NEXPLANON [Suspect]
     Indication: CONTRACEPTION
     Dosage: LEFT ARM, IN THE SULCUS BICIPITALIS MEDIALIS
     Route: 059
     Dates: start: 20120726

REACTIONS (3)
  - Implant site irritation [Recovering/Resolving]
  - Implant site pruritus [Recovering/Resolving]
  - Device kink [Recovering/Resolving]
